FAERS Safety Report 9618674 (Version 2)
Quarter: 2013Q4

REPORT INFORMATION
  Report Type: Spontaneous
  Country: US (occurrence: US)
  Receive Date: 20131014
  Receipt Date: 20131021
  Transmission Date: 20140711
  Serious: No
  Sender: FDA-Public Use
  Company Number: US-PFIZER INC-2013293647

PATIENT
  Age: 75 Year
  Sex: Female
  Weight: 90.7 kg

DRUGS (2)
  1. LYRICA [Suspect]
     Indication: NEUROPATHY PERIPHERAL
     Dosage: 100 MG, 3X/DAY
     Dates: start: 201309
  2. HYDROCODONE [Concomitant]
     Indication: PAIN
     Dosage: 20 MG, 1X/DAY

REACTIONS (2)
  - Sexual dysfunction [Unknown]
  - Anorgasmia [Unknown]
